FAERS Safety Report 13531594 (Version 1)
Quarter: 2017Q2

REPORT INFORMATION
  Report Type: Spontaneous
  Country: DE (occurrence: DE)
  Receive Date: 20170510
  Receipt Date: 20170510
  Transmission Date: 20170830
  Serious: Yes (Hospitalization)
  Sender: FDA-Public Use
  Company Number: PHHY2017DE045957

PATIENT
  Sex: Male
  Weight: 12.4 kg

DRUGS (4)
  1. MTX [Concomitant]
     Active Substance: METHOTREXATE SODIUM
     Indication: STILL^S DISEASE
     Dosage: 5 MG, QW
     Route: 058
     Dates: start: 20120725
  2. OMEPRAZOLE. [Concomitant]
     Active Substance: OMEPRAZOLE
     Indication: PROPHYLAXIS
     Dosage: 10 MG, QD
     Route: 048
     Dates: start: 20140122
  3. INDOMETACIN [Concomitant]
     Active Substance: INDOMETHACIN
     Indication: STILL^S DISEASE
     Dosage: 10 MG, QD
     Route: 048
     Dates: start: 20140122
  4. ILARIS [Suspect]
     Active Substance: CANAKINUMAB
     Indication: STILL^S DISEASE
     Dosage: 52.8 G, EVERY 4 WEEKS
     Route: 042
     Dates: start: 20130807

REACTIONS (4)
  - Hernia [Recovered/Resolved]
  - Otitis media [Recovered/Resolved]
  - Tonsillitis [Recovered/Resolved]
  - Incorrect route of drug administration [Unknown]

NARRATIVE: CASE EVENT DATE: 20130807
